FAERS Safety Report 5703070-3 (Version None)
Quarter: 2008Q2

REPORT INFORMATION
  Report Type: 
  Country: None (occurrence: None)
  Receive Date: 20080411
  Receipt Date: 20080401
  Transmission Date: 20081010
  Serious: Yes (Other)
  Sender: FDA-Public Use
  Company Number: US-PFIZER INC-2008029340

PATIENT
  Sex: Male
  Weight: 90.909 kg

DRUGS (4)
  1. LIPITOR [Suspect]
     Indication: BLOOD CHOLESTEROL INCREASED
  2. PRILOSEC [Concomitant]
  3. ACETYLSALICYLIC ACID SRT [Concomitant]
  4. NORVASC [Concomitant]

REACTIONS (2)
  - CORONARY ARTERY BYPASS [None]
  - SWOLLEN TONGUE [None]
